FAERS Safety Report 16112473 (Version 2)
Quarter: 2019Q2

REPORT INFORMATION
  Report Type: Spontaneous
  Country: US (occurrence: US)
  Receive Date: 20190325
  Receipt Date: 20190430
  Transmission Date: 20190711
  Serious: No
  Sender: FDA-Public Use
  Company Number: US-PFIZER INC-2019120500

PATIENT
  Age: 65 Year
  Sex: Female

DRUGS (1)
  1. GABAPENTIN. [Suspect]
     Active Substance: GABAPENTIN
     Indication: NEUROPATHY PERIPHERAL
     Dosage: UNK
     Dates: start: 201902

REACTIONS (3)
  - Fatigue [Unknown]
  - Intentional product misuse [Unknown]
  - Drug effective for unapproved indication [Unknown]

NARRATIVE: CASE EVENT DATE: 2019
